FAERS Safety Report 25360335 (Version 1)
Quarter: 2025Q2

REPORT INFORMATION
  Report Type: Spontaneous
  Country: US (occurrence: US)
  Receive Date: 20250527
  Receipt Date: 20250527
  Transmission Date: 20250716
  Serious: Yes (Death)
  Sender: AMGEN
  Company Number: US-AMGEN-USASP2025100762

PATIENT

DRUGS (3)
  1. ARANESP [Suspect]
     Active Substance: DARBEPOETIN ALFA
     Indication: Product used for unknown indication
     Dosage: 10 MICROGRAM/KILOGRAM, QWK
     Route: 065
  2. IRON [Concomitant]
     Active Substance: IRON
     Dosage: UNK, QWK (MG/KG ONCE A WEEK)
     Route: 051
  3. IRON [Concomitant]
     Active Substance: IRON
     Dosage: UNK, QD (MG/KG/DAY)

REACTIONS (1)
  - Death [Fatal]
